FAERS Safety Report 8198272 (Version 3)
Quarter: 2015Q2

REPORT INFORMATION
  Report Type: Spontaneous
  Country: US (occurrence: US)
  Receive Date: 20111025
  Receipt Date: 20150521
  Transmission Date: 20150821
  Serious: Yes (Other)
  Sender: FDA-Public Use
  Company Number: PHHY2011US92638

PATIENT
  Age: 64 Year
  Sex: Male

DRUGS (7)
  1. ZOLEDRONIC ACID [Suspect]
     Active Substance: ZOLEDRONIC ACID
     Indication: PLASMA CELL MYELOMA
     Dosage: 4 MG  QMO-(MONTHLY DOSE OF 4 MG)
     Route: 042
     Dates: start: 2002
  2. METHYLPREDNISOLONE. [Concomitant]
     Active Substance: METHYLPREDNISOLONE
  3. CLARITHROMYCIN. [Concomitant]
     Active Substance: CLARITHROMYCIN
     Route: 048
  4. PAMIDRONATE DISODIUM. [Suspect]
     Active Substance: PAMIDRONATE DISODIUM
     Dosage: 90 MG, QMO
     Route: 042
     Dates: end: 2002
  5. BORTEZOMIB [Concomitant]
     Active Substance: BORTEZOMIB
     Route: 042
  6. MELPHALAN [Concomitant]
     Active Substance: MELPHALAN
     Dates: start: 200801
  7. THALIDOMIDE [Concomitant]
     Active Substance: THALIDOMIDE

REACTIONS (8)
  - Malignant neoplasm progression [Unknown]
  - Discomfort [Unknown]
  - Oedema peripheral [Unknown]
  - Plasma cell myeloma [Unknown]
  - Pain [Unknown]
  - Foot fracture [Recovering/Resolving]
  - Rib fracture [Unknown]
  - Pain in extremity [Unknown]

NARRATIVE: CASE EVENT DATE: 200804
